FAERS Safety Report 26107974 (Version 1)
Quarter: 2025Q4

REPORT INFORMATION
  Report Type: Report from Study
  Country: EU (occurrence: EU)
  Receive Date: 20251201
  Receipt Date: 20251201
  Transmission Date: 20260118
  Serious: Yes (Other)
  Sender: MYLAN
  Company Number: EU-SA-SAC20240521000760

PATIENT
  Age: 82 Year
  Sex: Female
  Weight: 64 kg

DRUGS (26)
  1. ATORVASTATIN [Suspect]
     Active Substance: ATORVASTATIN
     Indication: Blood cholesterol abnormal
     Dosage: UNK
  2. INSULIN GLARGINE [Suspect]
     Active Substance: INSULIN GLARGINE
     Indication: Type 2 diabetes mellitus
     Dosage: 10 DOSAGE FORM, 10 U
  3. INSULIN GLARGINE [Suspect]
     Active Substance: INSULIN GLARGINE
     Dosage: 12 INTERNATIONAL UNIT
  4. INSULIN GLARGINE [Suspect]
     Active Substance: INSULIN GLARGINE
     Dosage: 18 INTERNATIONAL UNIT
  5. INSULIN GLARGINE [Suspect]
     Active Substance: INSULIN GLARGINE
     Dosage: 20 INTERNATIONAL UNIT
  6. INSULIN GLARGINE [Suspect]
     Active Substance: INSULIN GLARGINE
     Dosage: 22 INTERNATIONAL UNIT
  7. INSULIN GLARGINE [Suspect]
     Active Substance: INSULIN GLARGINE
     Dosage: 24 DOSAGE FORM (24 U), QD
     Dates: start: 2024, end: 2024
  8. INSULIN GLARGINE [Suspect]
     Active Substance: INSULIN GLARGINE
     Dosage: 30 DOSAGE FORM, QD, 30 U, QD
     Dates: start: 202409
  9. INSULIN GLARGINE [Suspect]
     Active Substance: INSULIN GLARGINE
     Dosage: 34 DOSAGE FORM, QD, 34 U, QD
     Dates: start: 202409
  10. INSULIN GLARGINE [Suspect]
     Active Substance: INSULIN GLARGINE
     Dosage: 37 INTERNATIONAL UNIT, QD, 37 U, QD
  11. INSULIN GLARGINE [Suspect]
     Active Substance: INSULIN GLARGINE
     Dosage: 39 INTERNATIONAL UNIT, QD
     Dates: start: 2024, end: 2024
  12. INSULIN GLARGINE [Suspect]
     Active Substance: INSULIN GLARGINE
     Dosage: 42 INTERNATIONAL UNIT, QD
     Dates: start: 2024
  13. INSULIN GLARGINE [Suspect]
     Active Substance: INSULIN GLARGINE
     Dosage: 52 INTERNATIONAL UNIT, QD
  14. INSULIN GLARGINE [Suspect]
     Active Substance: INSULIN GLARGINE
     Dosage: 54 INTERNATIONAL UNIT, QD
  15. INSULIN GLARGINE [Suspect]
     Active Substance: INSULIN GLARGINE
     Dosage: 60 INTERNATIONAL UNIT, QD
     Route: 065
  16. INSULIN GLARGINE [Suspect]
     Active Substance: INSULIN GLARGINE
     Dosage: 64 INTERNATIONAL UNIT, QD
  17. INSULIN GLARGINE [Suspect]
     Active Substance: INSULIN GLARGINE
     Dosage: 74 INTERNATIONAL UNIT, QD
  18. INSULIN GLARGINE [Suspect]
     Active Substance: INSULIN GLARGINE
     Dosage: 80 DOSAGE FORM, QD 80 U QD.
  19. CORTISONE [Concomitant]
     Active Substance: CORTISONE
     Indication: Vocal cord polyp
     Dosage: UNK
  20. MORPHINE [Concomitant]
     Active Substance: MORPHINE
     Indication: Vocal cord polyp
     Dosage: UNK
  21. FENTANYL [Concomitant]
     Active Substance: FENTANYL
     Indication: Vocal cord polyp
     Dosage: UNK
  22. REPAGLINIDE [Concomitant]
     Active Substance: REPAGLINIDE
     Indication: Type 2 diabetes mellitus
     Dosage: 2 DOSAGE FORM, Q8H, 2-2-2, TID
  23. JANUVIA [Concomitant]
     Active Substance: SITAGLIPTIN PHOSPHATE
     Indication: Type 2 diabetes mellitus
     Dosage: 1 DOSAGE FORM, QD, POSOLOGY 1-0-0
  24. JARDIANCE [Concomitant]
     Active Substance: EMPAGLIFLOZIN
     Indication: Type 2 diabetes mellitus
     Dosage: 1 DOSAGE FORM, QD, POSOLOGY 1-0-0, QD
  25. Nolotil [Concomitant]
     Indication: Vocal cord polyp
     Dosage: UNK UNK, Q8H, TID
  26. ACETAMINOPHEN [Concomitant]
     Active Substance: ACETAMINOPHEN
     Indication: Vocal cord polyp
     Dosage: UNK

REACTIONS (26)
  - Diabetes mellitus inadequate control [Recovering/Resolving]
  - Blood glucose fluctuation [Not Recovered/Not Resolved]
  - Dysphagia [Recovering/Resolving]
  - Cough [Unknown]
  - Dry throat [Unknown]
  - Nervousness [Unknown]
  - Pain [Unknown]
  - Toothache [Not Recovered/Not Resolved]
  - Osteoarthritis [Not Recovered/Not Resolved]
  - Gait disturbance [Not Recovered/Not Resolved]
  - Decreased appetite [Recovering/Resolving]
  - Anaemia [Recovering/Resolving]
  - Blood cholesterol decreased [Recovering/Resolving]
  - Renal disorder [Recovering/Resolving]
  - Nasopharyngitis [Recovering/Resolving]
  - Malaise [Recovering/Resolving]
  - Diarrhoea [Recovered/Resolved]
  - Pyrexia [Unknown]
  - Pain in extremity [Not Recovered/Not Resolved]
  - Back pain [Not Recovered/Not Resolved]
  - Fatigue [Recovering/Resolving]
  - Blood glucose increased [Recovering/Resolving]
  - Injection site bruising [Recovered/Resolved]
  - Injection site haemorrhage [Unknown]
  - Injection site pain [Unknown]
  - Multiple use of single-use product [Unknown]

NARRATIVE: CASE EVENT DATE: 20240101
